FAERS Safety Report 6974916-6 (Version None)
Quarter: 2010Q3

REPORT INFORMATION
  Report Type: 
  Country: None (occurrence: None)
  Receive Date: 20100909
  Receipt Date: 20090108
  Transmission Date: 20110219
  Serious: No
  Sender: FDA-Public Use
  Company Number: US-WYE-H07633809

PATIENT
  Sex: Male
  Weight: 64.01 kg

DRUGS (1)
  1. PRISTIQ [Suspect]
     Indication: DEPRESSION
     Dosage: ^CUT PRISTIQ TABLET IN HALF FOR 1ST THREE DAYS OF THERAPY^
     Route: 048
     Dates: start: 20090105

REACTIONS (1)
  - URINE COLOUR ABNORMAL [None]
